FAERS Safety Report 20393972 (Version 1)
Quarter: 2022Q1

REPORT INFORMATION
  Report Type: Spontaneous
  Country: US (occurrence: US)
  Receive Date: 20220129
  Receipt Date: 20220129
  Transmission Date: 20220423
  Serious: Yes (Other)
  Sender: FDA-Public Use
  Company Number: US-JNJFOC-20220138513

PATIENT
  Age: 85 Year
  Sex: Male
  Weight: 79.904 kg

DRUGS (1)
  1. ERLEADA [Suspect]
     Active Substance: APALUTAMIDE
     Indication: Prostate cancer
     Route: 048
     Dates: start: 202008

REACTIONS (6)
  - Atrial flutter [Unknown]
  - Dysphonia [Unknown]
  - Hot flush [Unknown]
  - Confusional state [Unknown]
  - Fatigue [Unknown]
  - Balance disorder [Unknown]
